FAERS Safety Report 10360787 (Version 2)
Quarter: 2015Q3

REPORT INFORMATION
  Report Type: Spontaneous
  Country: US (occurrence: US)
  Receive Date: 20140804
  Receipt Date: 20150715
  Transmission Date: 20151125
  Serious: Yes (Other)
  Sender: FDA-Public Use
  Company Number: US-GLAXOSMITHKLINE-A1083712A

PATIENT
  Sex: Female

DRUGS (2)
  1. WELLBUTRIN XL [Suspect]
     Active Substance: BUPROPION HYDROCHLORIDE
     Indication: PRODUCT USED FOR UNKNOWN INDICATION
     Dosage: 150 MG. UNKNOWN DOSING.
     Route: 065
     Dates: start: 20090119, end: 20091012
  2. WELLBUTRIN SR [Suspect]
     Active Substance: BUPROPION HYDROCHLORIDE
     Indication: DEPRESSION
     Dosage: 150 MG. UNKNOWN DOSING.
     Route: 065
     Dates: start: 20091012

REACTIONS (3)
  - Systemic lupus erythematosus [Unknown]
  - Drug administration error [Unknown]
  - Headache [Unknown]
